FAERS Safety Report 7158752-6 (Version None)
Quarter: 2010Q4

REPORT INFORMATION
  Report Type: 
  Country: None (occurrence: None)
  Receive Date: 20101214
  Receipt Date: 20101211
  Transmission Date: 20110411
  Serious: Yes (Death, Hospitalization)
  Sender: FDA-Public Use
  Company Number: JO-PFIZER INC-2010169463

PATIENT
  Age: 20 Year
  Sex: Female

DRUGS (3)
  1. TYGACIL [Suspect]
     Indication: ACINETOBACTER INFECTION
     Dosage: 100 MG, SINGLE
     Route: 042
     Dates: start: 20101209, end: 20101209
  2. TYGACIL [Suspect]
     Dosage: 50 MG, 2X/DAY
     Route: 042
     Dates: start: 20101210
  3. COLISTIN [Concomitant]
     Indication: ACINETOBACTER INFECTION
     Dosage: 2 MILLIONIU, 3X/DAY
     Route: 042
     Dates: start: 20101207

REACTIONS (1)
  - DEATH [None]
